FAERS Safety Report 7010891 (Version 3)
Quarter: 2014Q1

REPORT INFORMATION
  Report Type: Spontaneous
  Country: US (occurrence: None)
  Receive Date: 20090526
  Receipt Date: 20140114
  Transmission Date: 20141002
  Serious: Yes (Hospitalization, Other)
  Sender: FDA-Public Use
  Company Number: 2009S1004152

PATIENT
  Age: 65 Year
  Sex: Male
  Weight: 84.82 kg

DRUGS (10)
  1. FLEET PHOSPHO-SODA ORAL SALINE LAXATIVE, GINGER-LEMON FLAVOR (ORAL SOLUTION) [Suspect]
     Indication: COLONOSCOPY
     Dosage: 90 ML;TOTAL;PO
     Route: 048
     Dates: start: 20080824, end: 20080825
  2. PLAVIX (CLOPIDOGREL BISULFATE) (75 MILLIGRAM, TABLET) [Concomitant]
  3. TOPROL XL (METOPROLOL SUCCINATE) (25 MILLIGRAM, TABLET) [Concomitant]
  4. ASCRIPTIN (ACETYLSALICYLIC ACID, MAGNESIUM HYDROXIDE, ALUMINIUM HYDROXIDE) (325 MILLIGRAM, ENTERIC-COATED TABLET) [Concomitant]
  5. NEXIUM (ESOMEPRAZOLE MAGNESIUM) (20 MILLIGRAM, CAPSULE) [Concomitant]
  6. ZOCOR (SIMVASTATIN) (20 MILLIGRAM, TABLET) [Concomitant]
  7. AMIODARONE (AMIODARONE) (200 MILLIGRAM, TABLET) [Concomitant]
  8. NITROSTAT (GLYCERYL TRINITRATE) [Concomitant]
  9. TESTOSTERONE (TESTOSETERONE) (SOLUTION FOR INJECTION) [Concomitant]
  10. VALIUM (DIAZEPAM) [Concomitant]

REACTIONS (4)
  - Nephrocalcinosis [None]
  - Renal disorder [None]
  - Blood creatine increased [None]
  - Glomerular filtration rate decreased [None]
